FAERS Safety Report 17327743 (Version 1)
Quarter: 2020Q1

REPORT INFORMATION
  Report Type: Spontaneous
  Country: US (occurrence: US)
  Receive Date: 20200127
  Receipt Date: 20200127
  Transmission Date: 20200409
  Serious: No
  Sender: FDA-Public Use
  Company Number: US-BAUSCH-BL-2020-000575

PATIENT
  Age: 32 Year
  Sex: Female

DRUGS (2)
  1. TRULANCE [Suspect]
     Active Substance: PLECANATIDE
     Indication: IRRITABLE BOWEL SYNDROME
     Route: 048
     Dates: start: 20191118, end: 20191121
  2. TRULANCE [Suspect]
     Active Substance: PLECANATIDE
     Dosage: APPROXIMATELY 2 WEEKS PRIOR TO INITIAL REPORT
     Route: 048
     Dates: start: 201912

REACTIONS (4)
  - Abdominal pain upper [Recovered/Resolved]
  - Therapy cessation [Unknown]
  - Diarrhoea [Recovered/Resolved]
  - Inappropriate schedule of product administration [Unknown]

NARRATIVE: CASE EVENT DATE: 2019
